FAERS Safety Report 25715906 (Version 2)
Quarter: 2025Q4

REPORT INFORMATION
  Report Type: Report from Study
  Country: GB (occurrence: GB)
  Receive Date: 20250822
  Receipt Date: 20251210
  Transmission Date: 20260118
  Serious: Yes (Death, Hospitalization, Other)
  Sender: TEVA
  Company Number: GB-TEVA-VS-3363929

PATIENT
  Age: 72 Year
  Sex: Male

DRUGS (1)
  1. OCTREOTIDE [Suspect]
     Active Substance: OCTREOTIDE
     Indication: Product used for unknown indication
     Dosage: OLATUTON
     Route: 065

REACTIONS (4)
  - Death [Fatal]
  - Hospitalisation [Unknown]
  - Malaise [Unknown]
  - Retinal detachment [Unknown]

NARRATIVE: CASE EVENT DATE: 20250101
